FAERS Safety Report 6870639-2 (Version None)
Quarter: 2010Q3

REPORT INFORMATION
  Report Type: 
  Country: None (occurrence: None)
  Receive Date: 20100721
  Receipt Date: 20100708
  Transmission Date: 20110219
  Serious: Yes (Hospitalization)
  Sender: FDA-Public Use
  Company Number: 2010PL000077

PATIENT
  Age: 77 Year
  Sex: Male

DRUGS (1)
  1. AZATHIOPRINE [Suspect]
     Indication: PHOTOSENSITIVITY REACTION
     Dosage: 2 MG/KG;QD; PO
     Route: 048

REACTIONS (9)
  - ARTHRALGIA [None]
  - ASTHENIA [None]
  - DIARRHOEA [None]
  - DISEASE RECURRENCE [None]
  - DRUG HYPERSENSITIVITY [None]
  - EPISTAXIS [None]
  - HEADACHE [None]
  - MYALGIA [None]
  - PYREXIA [None]
